FAERS Safety Report 5547242-X (Version None)
Quarter: 2007Q4

REPORT INFORMATION
  Report Type: 
  Country: None (occurrence: None)
  Receive Date: 20071211
  Receipt Date: 20071206
  Transmission Date: 20080405
  Serious: Yes (Hospitalization)
  Sender: FDA-Public Use
  Company Number: A0697746A

PATIENT
  Age: 38 Year
  Sex: Female

DRUGS (5)
  1. TYKERB [Suspect]
     Indication: BREAST CANCER
     Dosage: 1250MG PER DAY
     Route: 048
     Dates: start: 20070601, end: 20070609
  2. XELODA [Concomitant]
  3. LUPRON [Concomitant]
  4. NAVELBINE [Concomitant]
  5. MORPHINE [Concomitant]

REACTIONS (9)
  - BURNING SENSATION [None]
  - DIARRHOEA [None]
  - DYSPNOEA [None]
  - HAEMATOCHEZIA [None]
  - MOUTH ULCERATION [None]
  - OEDEMA DUE TO HEPATIC DISEASE [None]
  - OEDEMATOUS PANCREATITIS [None]
  - RASH [None]
  - SKIN DISCOLOURATION [None]
